FAERS Safety Report 11813094 (Version 1)
Quarter: 2015Q4

REPORT INFORMATION
  Report Type: Report from Study
  Country: ZA (occurrence: ZA)
  Receive Date: 20151209
  Receipt Date: 20151209
  Transmission Date: 20160305
  Serious: Yes (Other)
  Sender: FDA-Public Use
  Company Number: ZA-ROCHE-1674542

PATIENT

DRUGS (1)
  1. ALTEPLASE [Suspect]
     Active Substance: ALTEPLASE
     Indication: EMPYEMA
     Dosage: 4MG TPA IN 40ML 0.9% SALINE (2MG IN CHILDREN { 5 KG)
     Route: 034

REACTIONS (2)
  - Haemothorax [Unknown]
  - Device occlusion [Unknown]
